FAERS Safety Report 15058987 (Version 1)
Quarter: 2018Q2

REPORT INFORMATION
  Report Type: Spontaneous
  Country: US (occurrence: US)
  Receive Date: 20180605
  Receipt Date: 20180605
  Transmission Date: 20180711
  Serious: No
  Sender: FDA-Public Use
  Company Number: None

PATIENT
  Age: 63 Year
  Sex: Female

DRUGS (4)
  1. ZOFRAN [Concomitant]
     Active Substance: ONDANSETRON HYDROCHLORIDE
  2. TRAMADOL. [Concomitant]
     Active Substance: TRAMADOL
  3. TYKERB [Suspect]
     Active Substance: LAPATINIB DITOSYLATE
  4. TRIAMTERENE/HYDROCHLOROTHIAZE [Concomitant]

REACTIONS (3)
  - Hypoaesthesia [None]
  - Neuropathy peripheral [None]
  - Headache [None]

NARRATIVE: CASE EVENT DATE: 20180521
